FAERS Safety Report 12414188 (Version 2)
Quarter: 2016Q2

REPORT INFORMATION
  Report Type: Spontaneous
  Country: CA (occurrence: CA)
  Receive Date: 20160527
  Receipt Date: 20160603
  Transmission Date: 20160815
  Serious: Yes (Life-Threatening, Hospitalization, Other)
  Sender: FDA-Public Use
  Company Number: CA-APOTEX-2016AP008711

PATIENT
  Age: 61 Year
  Sex: Male

DRUGS (1)
  1. APO-ALLOPURINOL [Suspect]
     Active Substance: ALLOPURINOL
     Indication: GOUT
     Dosage: UNK
     Route: 065

REACTIONS (3)
  - Symblepharon [Recovering/Resolving]
  - Parophthalmia [Recovering/Resolving]
  - Toxic epidermal necrolysis [Unknown]
